FAERS Safety Report 12442891 (Version 2)
Quarter: 2016Q3

REPORT INFORMATION
  Report Type: Spontaneous
  Country: US (occurrence: US)
  Receive Date: 20160607
  Receipt Date: 20160803
  Transmission Date: 20161109
  Serious: Yes (Death)
  Sender: FDA-Public Use
  Company Number: US-PFIZER INC-2016281036

PATIENT
  Age: 75 Year
  Sex: Female

DRUGS (3)
  1. DILANTIN [Suspect]
     Active Substance: PHENYTOIN
     Indication: ARRHYTHMIA
     Dosage: 100 MG, UNK
     Route: 042
  2. DIGOXIN. [Suspect]
     Active Substance: DIGOXIN
     Indication: CARDIAC FAILURE CONGESTIVE
     Dosage: 0.5 MG, DAILY
     Route: 030
  3. DILANTIN [Suspect]
     Active Substance: PHENYTOIN
     Indication: ATRIAL TACHYCARDIA

REACTIONS (2)
  - Ventricular fibrillation [Fatal]
  - Ventricular asystole [Fatal]
